FAERS Safety Report 8448930-8 (Version None)
Quarter: 2012Q2

REPORT INFORMATION
  Report Type: 
  Country: None (occurrence: None)
  Receive Date: 20120619
  Receipt Date: 20120612
  Transmission Date: 20120825
  Serious: Yes (Other)
  Sender: FDA-Public Use
  Company Number: JP-GLAXOSMITHKLINE-B0806802A

PATIENT
  Age: 76 Year
  Sex: Male
  Weight: 71 kg

DRUGS (5)
  1. MONTELUKAST SODIUM [Concomitant]
     Indication: ASTHMA
     Route: 048
  2. HYDROCORTISONE [Suspect]
     Indication: ASTHMA
     Dosage: 600MG PER DAY
     Route: 042
  3. FLUTICASONE PROPIONATE [Suspect]
     Indication: ASTHMA
     Route: 055
  4. PREDNISOLONE [Suspect]
     Indication: ASTHMA
     Dosage: 20MG PER DAY
     Route: 048
  5. LEVOFLOXACIN [Concomitant]
     Indication: ASTHMA
     Route: 048

REACTIONS (18)
  - DRUG ERUPTION [None]
  - HYPERKERATOSIS [None]
  - ACANTHOSIS [None]
  - SECONDARY IMMUNODEFICIENCY [None]
  - MUCOCUTANEOUS CANDIDIASIS [None]
  - SKIN EXFOLIATION [None]
  - INTERLEUKIN-2 RECEPTOR INCREASED [None]
  - ORAL CANDIDIASIS [None]
  - ONYCHOMYCOSIS [None]
  - HYPERHIDROSIS [None]
  - PRURITUS [None]
  - RASH ERYTHEMATOUS [None]
  - RASH PAPULAR [None]
  - BLOOD IMMUNOGLOBULIN A INCREASED [None]
  - OCCULT BLOOD POSITIVE [None]
  - PERIVASCULAR DERMATITIS [None]
  - BLOOD IMMUNOGLOBULIN M DECREASED [None]
  - LEUKOCYTOCLASTIC VASCULITIS [None]
